FAERS Safety Report 19810625 (Version 4)
Quarter: 2023Q4

REPORT INFORMATION
  Report Type: Spontaneous
  Country: US (occurrence: US)
  Receive Date: 20210909
  Receipt Date: 20231003
  Transmission Date: 20240109
  Serious: Yes (Hospitalization, Other)
  Sender: FDA-Public Use
  Company Number: US-PFIZER INC-2021530856

PATIENT
  Age: 57 Year
  Sex: Female
  Weight: 85.714 kg

DRUGS (4)
  1. IBRANCE [Suspect]
     Active Substance: PALBOCICLIB
     Indication: Breast cancer metastatic
     Dosage: ONCE DAILY FOR 21 DAYS
     Route: 048
     Dates: start: 20210130
  2. IBRANCE [Suspect]
     Active Substance: PALBOCICLIB
     Dosage: DAILY FOR 21 DAYS ON THEN 7 DAYS OFF
     Route: 048
     Dates: start: 202102
  3. EFFEXOR [Concomitant]
     Active Substance: VENLAFAXINE HYDROCHLORIDE
     Indication: Depression
     Dosage: UNK
  4. EFFEXOR [Concomitant]
     Active Substance: VENLAFAXINE HYDROCHLORIDE
     Indication: Hyperhidrosis

REACTIONS (10)
  - Hypertension [Unknown]
  - Full blood count abnormal [Unknown]
  - Diarrhoea haemorrhagic [Not Recovered/Not Resolved]
  - Brain fog [Unknown]
  - Hyperhidrosis [Not Recovered/Not Resolved]
  - Herpes zoster [Unknown]
  - Urinary tract infection [Recovered/Resolved]
  - Weight decreased [Not Recovered/Not Resolved]
  - Decreased appetite [Not Recovered/Not Resolved]
  - Gastrointestinal disorder [Unknown]

NARRATIVE: CASE EVENT DATE: 20210101
